FAERS Safety Report 13596186 (Version 1)
Quarter: 2017Q2

REPORT INFORMATION
  Report Type: Spontaneous
  Country: US (occurrence: US)
  Receive Date: 20170531
  Receipt Date: 20170531
  Transmission Date: 20170830
  Serious: No
  Sender: FDA-Public Use
  Company Number: US-JNJFOC-20170321319

PATIENT
  Age: 3 Month
  Sex: Female
  Weight: 4.08 kg

DRUGS (1)
  1. INFANTS TYLENOL [Suspect]
     Active Substance: ACETAMINOPHEN
     Indication: TEETHING
     Dosage: CURRENT USE
     Route: 048

REACTIONS (2)
  - Irritability [Recovered/Resolved]
  - Abdominal discomfort [Recovered/Resolved]
